FAERS Safety Report 6568048-9 (Version None)
Quarter: 2010Q1

REPORT INFORMATION
  Report Type: 
  Country: None (occurrence: None)
  Receive Date: 20100203
  Receipt Date: 20100120
  Transmission Date: 20100710
  Serious: Yes (Hospitalization)
  Sender: FDA-Public Use
  Company Number: US-ELI_LILLY_AND_COMPANY-US201001004569

PATIENT
  Sex: Female

DRUGS (3)
  1. CYMBALTA [Suspect]
     Indication: SCIATICA
     Dosage: 30 MG, EACH MORNING
     Dates: start: 20080101
  2. CYMBALTA [Suspect]
     Dosage: 60 MG, EACH EVENING
     Dates: start: 20080101
  3. CYMBALTA [Suspect]
     Dosage: 60 MG, OTHER

REACTIONS (7)
  - ANXIETY [None]
  - BRADYPHRENIA [None]
  - CEREBROVASCULAR ACCIDENT [None]
  - DRUG WITHDRAWAL SYNDROME [None]
  - IRRITABILITY [None]
  - OVERDOSE [None]
  - TINNITUS [None]
